FAERS Safety Report 22199513 (Version 1)
Quarter: 2023Q2

REPORT INFORMATION
  Report Type: Other
  Country: AU (occurrence: AU)
  Receive Date: 20230412
  Receipt Date: 20230412
  Transmission Date: 20230722
  Serious: Yes (Other)
  Sender: FDA-Public Use
  Company Number: AU-CELLTRION INC.-2023AU007252

PATIENT

DRUGS (2)
  1. RITUXIMAB [Suspect]
     Active Substance: RITUXIMAB
     Indication: Product used for unknown indication
  2. IBRUTINIB [Suspect]
     Active Substance: IBRUTINIB
     Indication: Product used for unknown indication

REACTIONS (6)
  - Pneumonia [Unknown]
  - Neuropathy peripheral [Unknown]
  - Emotional disorder [Unknown]
  - Therapeutic response unexpected [Unknown]
  - Fatigue [Unknown]
  - Muscle spasms [Unknown]
